FAERS Safety Report 5515724-2 (Version None)
Quarter: 2007Q4

REPORT INFORMATION
  Report Type: 
  Country: None (occurrence: None)
  Receive Date: 20071114
  Receipt Date: 20071109
  Transmission Date: 20080405
  Serious: Yes (Life-Threatening, Hospitalization)
  Sender: FDA-Public Use
  Company Number: US-RB-008519-07

PATIENT
  Age: 50 Year
  Sex: Male

DRUGS (3)
  1. SUBUTEX [Suspect]
     Dosage: PATIENT GIVEN 4 MG THEN 2 HOURS LATER ANOTHER 4 MG.
     Route: 060
  2. METHADONE HCL [Suspect]
     Dosage: UNKNOWN DOSAGE
     Route: 065
  3. NALTREXONE HYDROCHLORIDE [Suspect]
     Route: 065

REACTIONS (1)
  - RESPIRATORY ARREST [None]
